FAERS Safety Report 12405515 (Version 1)
Quarter: 2016Q2

REPORT INFORMATION
  Report Type: Spontaneous
  Country: FR (occurrence: FR)
  Receive Date: 20160525
  Receipt Date: 20160525
  Transmission Date: 20160815
  Serious: Yes (Hospitalization, Other)
  Sender: FDA-Public Use
  Company Number: FR-ELI_LILLY_AND_COMPANY-FR201605006253

PATIENT
  Age: 34 Year
  Sex: Female

DRUGS (4)
  1. CYMBALTA [Suspect]
     Active Substance: DULOXETINE HYDROCHLORIDE
     Indication: ARTHRALGIA
     Dosage: 60 MG, QD
     Route: 065
     Dates: start: 2012
  2. CODOLIPRANE [Suspect]
     Active Substance: ACETAMINOPHEN\CODEINE PHOSPHATE
     Indication: ARTHRALGIA
     Dosage: UNK, UNKNOWN
     Route: 065
  3. KETAMINE [Suspect]
     Active Substance: KETAMINE
     Indication: ARTHRALGIA
     Dosage: UNK, UNKNOWN
     Route: 065
     Dates: start: 201511
  4. CORTANCYL [Concomitant]
     Active Substance: PREDNISONE
     Indication: SCIATICA
     Dosage: 40 MG, QD
     Route: 065

REACTIONS (18)
  - Memory impairment [Unknown]
  - Off label use [Unknown]
  - Dyskinesia [Unknown]
  - Hoffmann^s sign [Unknown]
  - Arthralgia [Unknown]
  - Weight increased [Unknown]
  - Asthenia [Unknown]
  - Paraesthesia [Unknown]
  - Immune thrombocytopenic purpura [Unknown]
  - Disturbance in attention [Unknown]
  - Middle insomnia [Unknown]
  - Sciatica [Unknown]
  - Dry mouth [Unknown]
  - Tachycardia [Unknown]
  - Thrombocytopenia [Not Recovered/Not Resolved]
  - Night sweats [Unknown]
  - Carpal tunnel syndrome [Unknown]
  - Immunodeficiency [Unknown]

NARRATIVE: CASE EVENT DATE: 2012
